FAERS Safety Report 19304444 (Version 1)
Quarter: 2021Q2

REPORT INFORMATION
  Report Type: Spontaneous
  Country: US (occurrence: US)
  Receive Date: 20210525
  Receipt Date: 20210525
  Transmission Date: 20210717
  Serious: Yes (Disabling)
  Sender: FDA-Public Use
  Company Number: US-BIOMARINAP-US-2021-136296

PATIENT
  Age: 20 Year
  Sex: Female
  Weight: 57.6 kg

DRUGS (1)
  1. VIMIZIM [Suspect]
     Active Substance: ELOSULFASE ALFA
     Indication: MUCOPOLYSACCHARIDOSIS IV
     Dosage: 120 MILLIGRAM, QW
     Route: 042
     Dates: start: 2015

REACTIONS (1)
  - Osteoarthritis [Recovering/Resolving]
